APPROVED DRUG PRODUCT: SAXAGLIPTIN AND METFORMIN HYDROCHLORIDE
Active Ingredient: METFORMIN HYDROCHLORIDE; SAXAGLIPTIN HYDROCHLORIDE
Strength: 1GM;EQ 5MG BASE
Dosage Form/Route: TABLET, EXTENDED RELEASE;ORAL
Application: A206081 | Product #003
Applicant: SUN PHARMACEUTICAL INDUSTRIES LTD
Approved: Jul 31, 2023 | RLD: No | RS: No | Type: DISCN